FAERS Safety Report 5194301-X (Version None)
Quarter: 2006Q4

REPORT INFORMATION
  Report Type: 
  Country: None (occurrence: None)
  Receive Date: 20061228
  Receipt Date: 20061114
  Transmission Date: 20070319
  Serious: Yes (Other)
  Sender: FDA-Public Use
  Company Number: BE-PFIZER INC-2006142947

PATIENT
  Sex: Male
  Weight: 78 kg

DRUGS (4)
  1. LYRICA [Suspect]
     Indication: NEURALGIA
     Route: 048
  2. DUSPATALIN - SLOW RELEASE [Concomitant]
     Route: 048
  3. XALACOM [Concomitant]
     Route: 047
  4. DAFALGAN [Concomitant]
     Route: 048

REACTIONS (4)
  - COGNITIVE DISORDER [None]
  - DISORIENTATION [None]
  - DYSKINESIA [None]
  - SPEECH DISORDER [None]
